FAERS Safety Report 4426405-0 (Version None)
Quarter: 2004Q3

REPORT INFORMATION
  Report Type: 
  Country: None (occurrence: None)
  Receive Date: 20040811
  Receipt Date: 20040727
  Transmission Date: 20050211
  Serious: No
  Sender: FDA-Public Use
  Company Number: 2004AP03917

PATIENT
  Age: 74 Year
  Sex: Female

DRUGS (1)
  1. LOSEC [Suspect]
     Indication: OESOPHAGITIS
     Dosage: 40 MG DAILY PO
     Route: 048

REACTIONS (1)
  - RENAL FAILURE [None]
